FAERS Safety Report 7422945-0 (Version None)
Quarter: 2011Q2

REPORT INFORMATION
  Report Type: 
  Country: None (occurrence: None)
  Receive Date: 20110419
  Receipt Date: 20110408
  Transmission Date: 20111010
  Serious: Yes (Other)
  Sender: FDA-Public Use
  Company Number: US-JNJFOC-20110404923

PATIENT
  Sex: Female
  Weight: 90.72 kg

DRUGS (6)
  1. PREMARIN [Concomitant]
     Route: 048
  2. LEXAPRO [Concomitant]
     Route: 048
  3. LEVETIRACETAM [Concomitant]
     Route: 048
  4. FENTANYL CITRATE [Suspect]
     Indication: PRODUCT USED FOR UNKNOWN INDICATION
     Route: 062
  5. HYDROXYCHLOROQUINE SULFATE [Concomitant]
     Route: 048
  6. DURAGESIC [Suspect]
     Indication: PRODUCT USED FOR UNKNOWN INDICATION
     Route: 062

REACTIONS (6)
  - SPEECH DISORDER [None]
  - DRUG INEFFECTIVE [None]
  - MALAISE [None]
  - OEDEMA PERIPHERAL [None]
  - SWELLING [None]
  - PHARYNGEAL OEDEMA [None]
